FAERS Safety Report 6541489-1 (Version None)
Quarter: 2010Q1

REPORT INFORMATION
  Report Type: 
  Country: None (occurrence: None)
  Receive Date: 20100119
  Receipt Date: 20100106
  Transmission Date: 20100710
  Serious: Yes (Hospitalization)
  Sender: FDA-Public Use
  Company Number: US-CELGENEUS-163-20785-09121189

PATIENT
  Sex: Male

DRUGS (2)
  1. THALOMID [Suspect]
     Indication: LEPROMATOUS LEPROSY
     Route: 048
     Dates: start: 20081001
  2. THALOMID [Suspect]
     Route: 048
     Dates: start: 20080301, end: 20080101

REACTIONS (3)
  - ATRIOVENTRICULAR BLOCK COMPLETE [None]
  - POSTOPERATIVE WOUND INFECTION [None]
  - STAPHYLOCOCCAL SEPSIS [None]
